FAERS Safety Report 5656900-8 (Version None)
Quarter: 2008Q1

REPORT INFORMATION
  Report Type: 
  Country: None (occurrence: None)
  Receive Date: 20080310
  Receipt Date: 20080306
  Transmission Date: 20080703
  Serious: Yes (Death)
  Sender: FDA-Public Use
  Company Number: JP-GENENTECH-253508

PATIENT
  Age: 76 Year
  Sex: Female

DRUGS (5)
  1. GRTPA [Suspect]
     Indication: CAROTID ARTERY DISSECTION
     Dosage: 0.6 MG/KG, UNK
     Route: 042
     Dates: start: 20071227, end: 20071227
  2. LACTATED RINGER'S [Concomitant]
     Indication: DRUG USE FOR UNKNOWN INDICATION
     Dates: start: 20071227, end: 20071227
  3. DORMICUM [Concomitant]
     Indication: DRUG USE FOR UNKNOWN INDICATION
     Dates: start: 20071227, end: 20071227
  4. FAMOTIDINE [Concomitant]
     Indication: DRUG USE FOR UNKNOWN INDICATION
     Dates: start: 20071227, end: 20071227
  5. ASPIRIN [Concomitant]
     Indication: ANTIPLATELET THERAPY
     Dates: start: 20071226

REACTIONS (2)
  - AORTIC DISSECTION [None]
  - CARDIAC TAMPONADE [None]
